FAERS Safety Report 16830904 (Version 1)
Quarter: 2019Q3

REPORT INFORMATION
  Report Type: Report from Study
  Country: US (occurrence: US)
  Receive Date: 20190920
  Receipt Date: 20190920
  Transmission Date: 20191005
  Serious: Yes (Other)
  Sender: FDA-Public Use
  Company Number: US-ACADIA PHARMACEUTICALS INC.-ACA-2019-013888

PATIENT
  Age: 71 Year
  Sex: Female

DRUGS (2)
  1. NUPLAZID [Suspect]
     Active Substance: PIMAVANSERIN TARTRATE
     Indication: PARKINSON^S DISEASE
  2. NUPLAZID [Suspect]
     Active Substance: PIMAVANSERIN TARTRATE
     Indication: MULTIPLE SCLEROSIS
     Dosage: 34 MG, QD
     Route: 048
     Dates: start: 201908, end: 2019

REACTIONS (3)
  - Cellulitis [Unknown]
  - Swelling [Unknown]
  - Somnolence [Unknown]

NARRATIVE: CASE EVENT DATE: 201908
